FAERS Safety Report 17906213 (Version 1)
Quarter: 2020Q2

REPORT INFORMATION
  Report Type: Spontaneous
  Country: US (occurrence: US)
  Receive Date: 20200616
  Receipt Date: 20200616
  Transmission Date: 20200714
  Serious: No
  Sender: FDA-Public Use
  Company Number: US-ROCHE-2353900

PATIENT
  Sex: Female

DRUGS (17)
  1. TYLENOL ARTHRITIS PAIN [Concomitant]
     Active Substance: ACETAMINOPHEN
  2. ACTEMRA [Suspect]
     Active Substance: TOCILIZUMAB
     Indication: RHEUMATOID ARTHRITIS
     Route: 058
     Dates: start: 20190620
  3. ASPIRIN [ACETYLSALICYLIC ACID] [Concomitant]
     Active Substance: ASPIRIN
  4. MAGNESIUM SALT [Concomitant]
     Active Substance: MAGNESIUM
  5. LANTUS [Concomitant]
     Active Substance: INSULIN GLARGINE
  6. FENOFIBRATE. [Concomitant]
     Active Substance: FENOFIBRATE
  7. HUMALOG [Concomitant]
     Active Substance: INSULIN LISPRO
  8. BUPROPION. [Concomitant]
     Active Substance: BUPROPION
  9. METFORMIN [Concomitant]
     Active Substance: METFORMIN HYDROCHLORIDE
  10. LORATADINE. [Concomitant]
     Active Substance: LORATADINE
  11. FOLIC ACID. [Concomitant]
     Active Substance: FOLIC ACID
  12. ERYTHROMYCIN. [Concomitant]
     Active Substance: ERYTHROMYCIN
  13. VITAMIN C [Concomitant]
     Active Substance: ASCORBIC ACID
  14. HYDROCHLOROTHIAZIDE. [Concomitant]
     Active Substance: HYDROCHLOROTHIAZIDE
  15. VITAMIN D3 [Concomitant]
     Active Substance: CHOLECALCIFEROL
  16. LISINOPRIL. [Concomitant]
     Active Substance: LISINOPRIL
  17. PREDNISONE. [Concomitant]
     Active Substance: PREDNISONE

REACTIONS (1)
  - Injection site pain [Unknown]
